FAERS Safety Report 18173403 (Version 1)
Quarter: 2020Q3

REPORT INFORMATION
  Report Type: Spontaneous
  Country: JP (occurrence: JP)
  Receive Date: 20200820
  Receipt Date: 20200820
  Transmission Date: 20201103
  Serious: Yes (Other)
  Sender: FDA-Public Use
  Company Number: JP-009507513-1511JPN015559

PATIENT
  Age: 51 Year
  Sex: Male
  Weight: 76 kg

DRUGS (6)
  1. ZANTAC [Concomitant]
     Active Substance: RANITIDINE HYDROCHLORIDE
     Dosage: 150 DOSAGE FORM, BID
     Route: 048
     Dates: start: 20060921
  2. PEGINTRON [Suspect]
     Active Substance: PEGINTERFERON ALFA-2B
     Indication: CHRONIC HEPATITIS C
     Dosage: UNKNOWN NUMBER OF DIVIDED DOSES
     Route: 058
     Dates: start: 20070104, end: 20070402
  3. REBETOL [Suspect]
     Active Substance: RIBAVIRIN
     Indication: CHRONIC HEPATITIS C
     Dosage: MORNING 200, EVENING 400
     Route: 048
     Dates: start: 20070207, end: 20070402
  4. PREDNISOLONE. [Concomitant]
     Active Substance: PREDNISOLONE
     Indication: TRANSPLANT
     Dosage: MORNING 10, LUNCH 7.5
     Route: 048
     Dates: start: 20060908
  5. PROGRAF [Concomitant]
     Active Substance: TACROLIMUS
     Indication: TRANSPLANT
     Dosage: 2 DOSAGE FORM, BID
     Route: 048
     Dates: start: 20060911
  6. MIYA?BM [Concomitant]
     Active Substance: CLOSTRIDIUM BUTYRICUM SPORES STRAIN M-55
     Dosage: 1, TID
     Route: 048
     Dates: start: 20060904

REACTIONS (1)
  - Retinal detachment [Recovering/Resolving]

NARRATIVE: CASE EVENT DATE: 20070402
